FAERS Safety Report 21261305 (Version 1)
Quarter: 2022Q3

REPORT INFORMATION
  Report Type: Spontaneous
  Country: US (occurrence: US)
  Receive Date: 20220827
  Receipt Date: 20220827
  Transmission Date: 20221026
  Serious: No
  Sender: FDA-Public Use
  Company Number: US-JNJFOC-20220825143

PATIENT

DRUGS (1)
  1. MOTRIN INFANTS [Suspect]
     Active Substance: IBUPROFEN
     Indication: Accidental exposure to product
     Route: 047

REACTIONS (1)
  - Accidental exposure to product [Unknown]

NARRATIVE: CASE EVENT DATE: 20220811
